FAERS Safety Report 4509667-0 (Version None)
Quarter: 2004Q4

REPORT INFORMATION
  Report Type: 
  Country: None (occurrence: None)
  Receive Date: 20041124
  Receipt Date: 20041118
  Transmission Date: 20050328
  Serious: Yes (Other)
  Sender: FDA-Public Use
  Company Number: PHEH2004US12467

PATIENT
  Age: 57 Year
  Sex: Female

DRUGS (6)
  1. ZELNORM [Suspect]
     Indication: IRRITABLE BOWEL SYNDROME
     Dosage: 6 MG, BID
     Route: 048
     Dates: start: 20041020
  2. PROTONIX [Concomitant]
  3. PREMARIN [Concomitant]
  4. HYDROCODONE [Concomitant]
  5. VALIUM [Concomitant]
  6. EFFEXOR [Concomitant]

REACTIONS (1)
  - HAEMATOCHEZIA [None]
